FAERS Safety Report 8745642 (Version 2)
Quarter: 2013Q4

REPORT INFORMATION
  Report Type: Spontaneous
  Country: US (occurrence: US)
  Receive Date: 20120826
  Receipt Date: 20131031
  Transmission Date: 20140711
  Serious: No
  Sender: FDA-Public Use
  Company Number: US-009507513-2012SP010297

PATIENT
  Age: 67 Year
  Sex: Female
  Weight: 74.83 kg

DRUGS (7)
  1. MIRALAX [Suspect]
     Indication: CONSTIPATION
     Dosage: UNK UNK, UNKNOWN
     Route: 048
     Dates: end: 20120221
  2. MIRALAX [Suspect]
     Indication: MEDICAL OBSERVATION
  3. ARIMIDEX [Concomitant]
     Indication: BREAST CANCER
     Dosage: UNK, UNKNOWN
  4. HYDROCHLOROTHIAZIDE [Concomitant]
     Indication: PRODUCT USED FOR UNKNOWN INDICATION
     Dosage: UNK, UNKNOWN
  5. PYRIDOXINE [Concomitant]
     Indication: PRODUCT USED FOR UNKNOWN INDICATION
     Dosage: UNK, UNKNOWN
  6. CALTRATE (CALCIUM CARBONATE (+) CHOLECALCIFEROL) [Concomitant]
     Indication: PRODUCT USED FOR UNKNOWN INDICATION
     Dosage: UNK, UNKNOWN
  7. LOVAZA [Concomitant]
     Indication: PRODUCT USED FOR UNKNOWN INDICATION
     Dosage: UNK, UNKNOWN

REACTIONS (4)
  - Tremor [Recovered/Resolved]
  - Malaise [Recovered/Resolved]
  - Nonspecific reaction [Recovered/Resolved]
  - Product tampering [Unknown]
